FAERS Safety Report 14588056 (Version 1)
Quarter: 2018Q1

REPORT INFORMATION
  Report Type: Spontaneous
  Country: US (occurrence: US)
  Receive Date: 20180301
  Receipt Date: 20180301
  Transmission Date: 20180509
  Serious: No
  Sender: FDA-Public Use
  Company Number: US-JNJFOC-20180213045

PATIENT
  Age: 69 Year
  Sex: Female
  Weight: 47.63 kg

DRUGS (3)
  1. TYLENOL EXTRA STRENGTH [Suspect]
     Active Substance: ACETAMINOPHEN
     Indication: PAIN
     Dosage: ONCE
     Route: 065
     Dates: start: 20180207, end: 20180207
  2. TYLENOL III [Concomitant]
     Indication: MIGRAINE
     Route: 065
  3. TYLENOL EXTRA STRENGTH [Suspect]
     Active Substance: ACETAMINOPHEN
     Indication: PAIN
     Dosage: ONCE
     Route: 065
     Dates: start: 20180206

REACTIONS (4)
  - Restlessness [Recovered/Resolved]
  - Incorrect dose administered [Unknown]
  - Insomnia [Recovered/Resolved]
  - Reaction to excipient [Recovered/Resolved]

NARRATIVE: CASE EVENT DATE: 20180206
